FAERS Safety Report 5777574-1 (Version None)
Quarter: 2008Q2

REPORT INFORMATION
  Report Type: 
  Country: None (occurrence: None)
  Receive Date: 20080618
  Receipt Date: 20080610
  Transmission Date: 20081010
  Serious: Yes (Other)
  Sender: FDA-Public Use
  Company Number: US-PFIZER INC-2007078056

PATIENT
  Sex: Female
  Weight: 53.5 kg

DRUGS (6)
  1. VIRACEPT [Suspect]
     Indication: HIV INFECTION
     Dosage: TEXT:5 PILLS
     Route: 048
  2. LIPITOR [Suspect]
     Indication: BLOOD CHOLESTEROL INCREASED
     Dates: start: 20000101, end: 20080606
  3. COMBIVIR [Suspect]
     Indication: HIV INFECTION
     Dosage: TEXT:1 PILL
     Route: 048
  4. KALETRA [Suspect]
     Indication: HIV INFECTION
     Dates: start: 20070901, end: 20070901
  5. CALCIUM [Concomitant]
  6. VITAMIN CAP [Concomitant]

REACTIONS (13)
  - ABDOMINAL PAIN [None]
  - DIARRHOEA [None]
  - DIZZINESS [None]
  - EYE SWELLING [None]
  - FATIGUE [None]
  - HEPATIC PAIN [None]
  - MALAISE [None]
  - MUSCULAR WEAKNESS [None]
  - NAUSEA [None]
  - PERSONALITY CHANGE [None]
  - T-LYMPHOCYTE COUNT DECREASED [None]
  - VIRAL LOAD INCREASED [None]
  - VISION BLURRED [None]
